FAERS Safety Report 13412149 (Version 4)
Quarter: 2023Q4

REPORT INFORMATION
  Report Type: Spontaneous
  Country: US (occurrence: US)
  Receive Date: 20170406
  Receipt Date: 20231020
  Transmission Date: 20240110
  Serious: Yes (Other)
  Sender: FDA-Public Use
  Company Number: US-JNJFOC-20170314434

PATIENT
  Age: 22 Year
  Sex: Male

DRUGS (12)
  1. RISPERDAL [Suspect]
     Active Substance: RISPERIDONE
     Indication: Schizophrenia
     Route: 048
     Dates: start: 19991108
  2. RISPERDAL [Suspect]
     Active Substance: RISPERIDONE
     Indication: Aggression
     Dosage: VARYING DOSE OF 0.5 MG TO 3 MG
     Route: 048
     Dates: start: 20040129
  3. RISPERDAL [Suspect]
     Active Substance: RISPERIDONE
     Route: 048
     Dates: start: 20040129, end: 20140219
  4. RISPERDAL [Suspect]
     Active Substance: RISPERIDONE
     Route: 048
     Dates: start: 20140219
  5. RISPERIDONE [Suspect]
     Active Substance: RISPERIDONE
     Indication: Product used for unknown indication
     Route: 048
     Dates: start: 20040129, end: 20140219
  6. RISPERDAL [Suspect]
     Active Substance: RISPERIDONE
     Indication: Schizophrenia
     Route: 048
     Dates: start: 20040130, end: 20080730
  7. RISPERDAL [Suspect]
     Active Substance: RISPERIDONE
     Dosage: 1,5 MG AM, AND 3 MG AT HS
     Route: 048
     Dates: start: 20040329, end: 20040920
  8. RISPERDAL [Suspect]
     Active Substance: RISPERIDONE
     Dosage: 1.5 ML IN AM, 3 ML IN PM
     Route: 048
     Dates: start: 20060116
  9. RISPERDAL [Suspect]
     Active Substance: RISPERIDONE
     Indication: Schizophrenia
     Route: 048
     Dates: start: 20080821, end: 20140129
  10. RISPERDAL [Suspect]
     Active Substance: RISPERIDONE
     Dosage: 3 ML AT QHS
     Route: 048
     Dates: start: 20170110
  11. RISPERDAL M-TAB [Suspect]
     Active Substance: RISPERIDONE
     Indication: Schizophrenia
     Route: 048
     Dates: start: 20070327, end: 20070428
  12. RISPERDAL M-TAB [Suspect]
     Active Substance: RISPERIDONE
     Route: 048
     Dates: start: 20070601

REACTIONS (3)
  - Obesity [Not Recovered/Not Resolved]
  - Gynaecomastia [Unknown]
  - Emotional distress [Unknown]

NARRATIVE: CASE EVENT DATE: 20061201
